FAERS Safety Report 6040444-8 (Version None)
Quarter: 2009Q1

REPORT INFORMATION
  Report Type: 
  Country: None (occurrence: None)
  Receive Date: 20090116
  Receipt Date: 20080310
  Transmission Date: 20090719
  Serious: No
  Sender: FDA-Public Use
  Company Number: US-BRISTOL-MYERS SQUIBB COMPANY-14109284

PATIENT
  Age: 53 Year
  Sex: Male

DRUGS (4)
  1. ABILIFY [Suspect]
     Indication: PARANOIA
  2. TRILEPTAL [Concomitant]
  3. MULTI-VITAMINS [Concomitant]
  4. KLONOPIN [Concomitant]

REACTIONS (2)
  - LOGORRHOEA [None]
  - RESTLESSNESS [None]
